FAERS Safety Report 7937731-2 (Version None)
Quarter: 2011Q4

REPORT INFORMATION
  Report Type: 
  Country: None (occurrence: None)
  Receive Date: 20111123
  Receipt Date: 20111117
  Transmission Date: 20120403
  Serious: Yes (Hospitalization)
  Sender: FDA-Public Use
  Company Number: PHHY2011US61028

PATIENT
  Sex: Male
  Weight: 111.11 kg

DRUGS (4)
  1. GILENYA [Suspect]
     Indication: MULTIPLE SCLEROSIS
     Dosage: 0.5 MG, QD
     Route: 048
     Dates: start: 20110115, end: 20110921
  2. RELAFEN [Concomitant]
     Dosage: UNK UKN, UNK
     Route: 048
  3. ACETAMINOPHEN [Concomitant]
     Dosage: UNK UKN, PRN
     Route: 048
  4. ROPINIROLE [Concomitant]
     Dosage: 1.5 MG, NIGHTLY
     Route: 048

REACTIONS (7)
  - PYREXIA [None]
  - MUSCULOSKELETAL STIFFNESS [None]
  - LIVER FUNCTION TEST ABNORMAL [None]
  - URINARY TRACT INFECTION [None]
  - MULTIPLE SCLEROSIS RELAPSE [None]
  - ABASIA [None]
  - FALL [None]
